FAERS Safety Report 14106606 (Version 1)
Quarter: 2017Q4

REPORT INFORMATION
  Report Type: Spontaneous
  Country: US (occurrence: US)
  Receive Date: 20171018
  Receipt Date: 20171018
  Transmission Date: 20180321
  Serious: No
  Sender: FDA-Public Use
  Company Number: None

PATIENT

DRUGS (1)
  1. IMIPENEN CILASTATINA [Suspect]
     Active Substance: CILASTATIN SODIUM\IMIPENEM
     Dosage: ?          OTHER FREQUENCY:EVERY 6 HOURS;?
     Route: 042

REACTIONS (1)
  - Product label confusion [None]

NARRATIVE: CASE EVENT DATE: 20171013
